FAERS Safety Report 4351016-5 (Version None)
Quarter: 2004Q2

REPORT INFORMATION
  Report Type: 
  Country: None (occurrence: None)
  Receive Date: 20040427
  Receipt Date: 20040415
  Transmission Date: 20050107
  Serious: Yes (Hospitalization)
  Sender: FDA-Public Use
  Company Number: US073409FRWYE704715APR04

PATIENT
  Age: 51 Year
  Sex: Female

DRUGS (6)
  1. ENBREL [Suspect]
     Dosage: SC
     Route: 058
     Dates: start: 20031212, end: 20031212
  2. TRAMADOL HCL [Concomitant]
  3. NAPROXEN [Concomitant]
  4. PREDNISONE [Concomitant]
  5. OMEPRAZOLE [Concomitant]
  6. METHOTREXATE [Concomitant]

REACTIONS (8)
  - AURICULAR SWELLING [None]
  - COUGH [None]
  - DYSPHAGIA [None]
  - DYSPHONIA [None]
  - ERYTHEMA [None]
  - FEELING HOT [None]
  - NASAL OEDEMA [None]
  - OROPHARYNGEAL SWELLING [None]
